FAERS Safety Report 15692964 (Version 2)
Quarter: 2018Q4

REPORT INFORMATION
  Report Type: Spontaneous
  Country: US (occurrence: US)
  Receive Date: 20181206
  Receipt Date: 20181214
  Transmission Date: 20190205
  Serious: Yes (Other)
  Sender: FDA-Public Use
  Company Number: US-ROCHE-2223699

PATIENT
  Sex: Male

DRUGS (25)
  1. HUMIRA [Suspect]
     Active Substance: ADALIMUMAB
     Indication: ARTHRITIS
  2. PREDNISONE. [Suspect]
     Active Substance: PREDNISONE
     Indication: RHEUMATOID ARTHRITIS
     Route: 065
  3. RASUVO [Concomitant]
     Active Substance: METHOTREXATE SODIUM
     Dosage: ONGOING:UNKNOWN
     Route: 065
     Dates: start: 20180531
  4. REMICADE [Concomitant]
     Active Substance: INFLIXIMAB
     Indication: ARTHRITIS ENTEROPATHIC
     Route: 048
     Dates: start: 201801, end: 201807
  5. HUMIRA [Suspect]
     Active Substance: ADALIMUMAB
     Indication: ARTHRITIS ENTEROPATHIC
  6. HUMIRA [Suspect]
     Active Substance: ADALIMUMAB
     Indication: RHEUMATOID ARTHRITIS
     Route: 058
     Dates: start: 201705
  7. ORENCIA [Suspect]
     Active Substance: ABATACEPT
     Indication: ARTHRITIS ENTEROPATHIC
     Route: 065
  8. ENBREL [Suspect]
     Active Substance: ETANERCEPT
     Indication: ARTHRITIS ENTEROPATHIC
  9. ENBREL [Suspect]
     Active Substance: ETANERCEPT
     Indication: ARTHRITIS
     Route: 065
     Dates: start: 201705, end: 201710
  10. RITUXAN [Suspect]
     Active Substance: RITUXIMAB
     Indication: RHEUMATOID ARTHRITIS
     Route: 065
  11. RITUXAN [Suspect]
     Active Substance: RITUXIMAB
     Indication: ARTHRITIS
  12. ORENCIA [Suspect]
     Active Substance: ABATACEPT
     Indication: RHEUMATOID ARTHRITIS
  13. XELJANZ [Concomitant]
     Active Substance: TOFACITINIB CITRATE
  14. KEVZARA [Concomitant]
     Active Substance: SARILUMAB
     Route: 065
     Dates: start: 201809, end: 201810
  15. RITUXAN [Suspect]
     Active Substance: RITUXIMAB
     Indication: ARTHRITIS ENTEROPATHIC
  16. METHOTREXATE. [Suspect]
     Active Substance: METHOTREXATE
     Indication: ARTHRITIS ENTEROPATHIC
  17. METHOTREXATE. [Suspect]
     Active Substance: METHOTREXATE
     Indication: ARTHRITIS ENTEROPATHIC
     Route: 048
  18. REMICADE [Concomitant]
     Active Substance: INFLIXIMAB
     Indication: ARTHRITIS
  19. METHOTREXATE. [Suspect]
     Active Substance: METHOTREXATE
     Indication: RHEUMATOID ARTHRITIS
     Route: 058
     Dates: start: 201710
  20. ORENCIA [Suspect]
     Active Substance: ABATACEPT
     Indication: ARTHRITIS
  21. PREDNISONE. [Suspect]
     Active Substance: PREDNISONE
     Indication: ARTHRITIS ENTEROPATHIC
  22. METHOTREXATE. [Suspect]
     Active Substance: METHOTREXATE
     Indication: ARTHRITIS
  23. ENBREL [Suspect]
     Active Substance: ETANERCEPT
     Indication: RHEUMATOID ARTHRITIS
  24. PREDNISONE. [Suspect]
     Active Substance: PREDNISONE
     Indication: ARTHRITIS
  25. METHOTREXATE SODIUM. [Concomitant]
     Active Substance: METHOTREXATE SODIUM
     Indication: ARTHRITIS

REACTIONS (11)
  - Peripheral swelling [Unknown]
  - Off label use [Unknown]
  - Myalgia [Unknown]
  - Ankylosing spondylitis [Unknown]
  - Intentional product use issue [Unknown]
  - Musculoskeletal stiffness [Unknown]
  - Pain in extremity [Unknown]
  - Arthralgia [Unknown]
  - Crohn^s disease [Unknown]
  - Joint swelling [Unknown]
  - Drug ineffective [Unknown]
